FAERS Safety Report 9529801 (Version 1)
Quarter: 2013Q1

REPORT INFORMATION
  Report Type: Spontaneous
  Country: US (occurrence: None)
  Receive Date: 20130318
  Receipt Date: 20130318
  Transmission Date: 20140127
  Serious: Yes (Disabling)
  Sender: FDA-Public Use
  Company Number: 2012SP018867

PATIENT
  Age: 58 Year
  Sex: Female
  Weight: 78.9 kg

DRUGS (5)
  1. VICTRELIS  (BOCEPREVIR) CAPSULE [Suspect]
     Indication: HEPATITIS C
     Route: 048
     Dates: start: 20111021, end: 20120409
  2. PEGINTERFERON [Suspect]
     Dates: start: 20110623, end: 20120409
  3. RIBAVIRIN (RIBAVIRIN) [Suspect]
     Indication: PRODUCT USED FOR UNKNOWN INDICATION
     Dosage: DOSE 1000 UNITS NOT PROVIDED
     Dates: start: 20110923, end: 20120409
  4. IMIPRAMINE HYDROCHLORIDE (IMIPRABINE HYDROCHLORIDE) [Concomitant]
  5. AMBIEN (ZOLPIDEM TARTRATE) [Concomitant]

REACTIONS (6)
  - Fatigue [None]
  - White blood cell count decreased [None]
  - Hypothyroidism [None]
  - Anaemia [None]
  - Dizziness [None]
  - Dyspnoea [None]
